FAERS Safety Report 12084278 (Version 1)
Quarter: 2016Q1

REPORT INFORMATION
  Report Type: Spontaneous
  Country: US (occurrence: None)
  Receive Date: 20160216
  Receipt Date: 20160216
  Transmission Date: 20160526
  Serious: Yes (Disabling)
  Sender: FDA-Public Use
  Company Number: None

PATIENT
  Age: 57 Year
  Sex: Female
  Weight: 61.24 kg

DRUGS (9)
  1. TOPAMAX [Concomitant]
     Active Substance: TOPIRAMATE
  2. OMEGA3^S [Concomitant]
  3. VITAMIN D3 [Concomitant]
     Active Substance: CHOLECALCIFEROL
  4. LYRICA [Suspect]
     Active Substance: PREGABALIN
     Indication: NEURALGIA
     Route: 048
     Dates: start: 20160105, end: 20160112
  5. LISINOPRIL. [Concomitant]
     Active Substance: LISINOPRIL
  6. TURMERIC [Concomitant]
     Active Substance: TURMERIC
  7. GABAPENTIN. [Concomitant]
     Active Substance: GABAPENTIN
  8. CALCIUM [Concomitant]
     Active Substance: CALCIUM
  9. LYRICA [Suspect]
     Active Substance: PREGABALIN
     Indication: PAIN IN EXTREMITY
     Route: 048
     Dates: start: 20160105, end: 20160112

REACTIONS (8)
  - Fall [None]
  - Lumbar vertebral fracture [None]
  - Activities of daily living impaired [None]
  - Loss of consciousness [None]
  - Somnolence [None]
  - Dizziness [None]
  - Syncope [None]
  - Thinking abnormal [None]

NARRATIVE: CASE EVENT DATE: 20160114
